FAERS Safety Report 9924604 (Version 3)
Quarter: 2014Q2

REPORT INFORMATION
  Report Type: Spontaneous
  Country: IT (occurrence: None)
  Receive Date: 20140220
  Receipt Date: 20140627
  Transmission Date: 20141212
  Serious: Yes (Hospitalization, Other)
  Sender: FDA-Public Use
  Company Number: 2014000003

PATIENT
  Age: 90 Year
  Sex: Female

DRUGS (2)
  1. ACEON (PERINDOPRIL ERBUMINE) TABLET [Suspect]
     Indication: HYPERTENSION
     Route: 048
     Dates: start: 20130501, end: 20131212
  2. LUVION (CANRENOIC ACID) [Suspect]
     Indication: CARDIAC FAILURE
     Dates: start: 20130501, end: 20131212

REACTIONS (16)
  - Cognitive disorder [None]
  - Sarcopenia [None]
  - Renal failure acute [None]
  - Hyperkalaemia [None]
  - Confusional state [None]
  - Haemoglobin decreased [None]
  - Cardiac murmur [None]
  - Crepitations [None]
  - Osteoarthritis [None]
  - Alanine aminotransferase increased [None]
  - Aspartate aminotransferase increased [None]
  - Cholelithiasis [None]
  - Nephroangiosclerosis [None]
  - Activities of daily living impaired [None]
  - Rales [None]
  - Blood alkaline phosphatase increased [None]
